FAERS Safety Report 18712174 (Version 1)
Quarter: 2021Q1

REPORT INFORMATION
  Report Type: Spontaneous
  Country: CN (occurrence: CN)
  Receive Date: 20210107
  Receipt Date: 20210107
  Transmission Date: 20210419
  Serious: Yes (Other)
  Sender: FDA-Public Use
  Company Number: CN-ASTELLAS-2021US000350

PATIENT
  Sex: Female

DRUGS (12)
  1. PROGRAF [Suspect]
     Active Substance: TACROLIMUS
     Dosage: 12.7 NG PER ML, UNKNOWN FREQ.
     Route: 048
  2. ASPIRIN [ACETYLSALICYLIC ACID] [Suspect]
     Active Substance: ASPIRIN
     Indication: ENDOMETRIAL THICKENING
     Dosage: UNK UNK, UNKNOWN FREQ.
     Route: 065
  3. DYDROGESTERONE [Suspect]
     Active Substance: DYDROGESTERONE
     Dosage: 80 MG, (PER DAY)
     Route: 065
  4. MEDROL [Suspect]
     Active Substance: METHYLPREDNISOLONE
     Route: 065
  5. AZATHIOPRINE. [Suspect]
     Active Substance: AZATHIOPRINE
     Indication: IMMUNOSUPPRESSION
     Dosage: 50 MG, (PER DAY)
     Route: 048
  6. DYDROGESTERONE [Suspect]
     Active Substance: DYDROGESTERONE
     Indication: ENDOMETRIAL THICKENING
     Dosage: 40 MG, (PER DAY)
     Route: 065
  7. PROGRAF [Suspect]
     Active Substance: TACROLIMUS
     Indication: IMMUNOSUPPRESSION
     Dosage: UNK UNK, UNKNOWN FREQ.
     Route: 048
  8. PROGRAF [Suspect]
     Active Substance: TACROLIMUS
     Dosage: 1 MG, UNKNOWN FREQ. (ELEVATED DOSE)
     Route: 048
  9. VITAMIN E [Suspect]
     Active Substance: .ALPHA.-TOCOPHEROL
     Indication: ENDOMETRIAL THICKENING
     Dosage: UNK UNK, UNKNOWN FREQ.
     Route: 065
  10. PROGRAF [Suspect]
     Active Substance: TACROLIMUS
     Dosage: 4 MG, (PER DAY)
     Route: 048
  11. PROGRAF [Suspect]
     Active Substance: TACROLIMUS
     Dosage: 1.5 MG, (PER DAY) (ADDING ANOTHER 0.5 MG PER DAY)
     Route: 048
  12. MEDROL [Suspect]
     Active Substance: METHYLPREDNISOLONE
     Indication: IMMUNOSUPPRESSION
     Dosage: 4 MG, (PER DAY)
     Route: 065

REACTIONS (3)
  - Subchorionic haematoma [Unknown]
  - Exposure during pregnancy [Unknown]
  - Premature delivery [Unknown]

NARRATIVE: CASE EVENT DATE: 20190120
